FAERS Safety Report 5076274-3 (Version None)
Quarter: 2006Q3

REPORT INFORMATION
  Report Type: 
  Country: None (occurrence: None)
  Receive Date: 20060804
  Receipt Date: 20060803
  Transmission Date: 20061208
  Serious: Yes (Hospitalization)
  Sender: FDA-Public Use
  Company Number: 223753

PATIENT
  Age: 65 Year
  Sex: Female

DRUGS (5)
  1. MABTHERA                 RITUXIMAB) [Suspect]
     Indication: RHEUMATOID ARTHRITIS
  2. ENBREL [Concomitant]
  3. HUMIRA [Concomitant]
  4. METHOTREXATE [Concomitant]
  5. PREVISCAN (FLUINDIONE) [Concomitant]

REACTIONS (2)
  - PULMONARY EMBOLISM [None]
  - TREATMENT NONCOMPLIANCE [None]
